FAERS Safety Report 7257851 (Version 4)
Quarter: 2014Q1

REPORT INFORMATION
  Report Type: Spontaneous
  Country: US (occurrence: US)
  Receive Date: 20100127
  Receipt Date: 20140129
  Transmission Date: 20141002
  Serious: Yes (Hospitalization, Other)
  Sender: FDA-Public Use
  Company Number: US-BAYER-201012153NA

PATIENT
  Age: 21 Year
  Sex: Female
  Weight: 72.56 kg

DRUGS (7)
  1. YAZ [Suspect]
     Indication: CONTRACEPTION
     Dosage: 1 DF (DAILY DOSE), QD, ORAL
     Route: 048
     Dates: start: 200701, end: 200905
  2. YASMIN [Suspect]
  3. I.V. SOLUTIONS [Concomitant]
  4. VICODIN [Concomitant]
  5. ZANTAC [Concomitant]
  6. IBUPROFEN [Concomitant]
     Dosage: 600 MG, UNK
     Dates: start: 20080222
  7. MOTRIN [Concomitant]
     Dosage: 600 MG THREE TIMES A DAY
     Route: 048
     Dates: start: 20080225

REACTIONS (4)
  - Gallbladder injury [Unknown]
  - Cholecystitis chronic [None]
  - Abdominal pain upper [None]
  - Nausea [None]
